FAERS Safety Report 7589129-7 (Version None)
Quarter: 2011Q3

REPORT INFORMATION
  Report Type: 
  Country: None (occurrence: None)
  Receive Date: 20110705
  Receipt Date: 20091031
  Transmission Date: 20111222
  Serious: Yes (Other)
  Sender: FDA-Public Use
  Company Number: US-BAYER-200937680NA

PATIENT
  Age: 55 Year
  Sex: Male
  Weight: 95 kg

DRUGS (35)
  1. SUFENTA PRESERVATIVE FREE [Concomitant]
     Dosage: UNK
     Route: 042
     Dates: start: 20020122, end: 20020122
  2. DOPAMINE HCL [Concomitant]
     Dosage: UNK
     Route: 042
     Dates: start: 20020122
  3. AMIODARONE HCL [Concomitant]
     Dosage: 150 MG, UNK
     Route: 042
     Dates: start: 20010630, end: 20010630
  4. LASIX [Concomitant]
     Dosage: 20 MG, UNK
     Route: 042
     Dates: start: 20020122, end: 20020122
  5. NAFCILLIN [Concomitant]
     Dosage: 1 GRAM X2
     Route: 042
     Dates: start: 20020122, end: 20020122
  6. LIDOCAINE [Concomitant]
     Dosage: 200 MG, UNK
     Route: 042
     Dates: start: 20020122, end: 20020122
  7. PHYTONADIONE [Concomitant]
     Dosage: 10 MG, UNK
     Route: 042
     Dates: start: 20010630, end: 20010630
  8. ASPIRIN [Concomitant]
     Dosage: 240 MG, ONCE
     Dates: start: 20010630, end: 20010630
  9. FENTANYL [Concomitant]
     Dosage: 200 MG, UNK
     Route: 042
     Dates: start: 20010630, end: 20010630
  10. VERSED [Concomitant]
     Dosage: UNK
     Route: 042
     Dates: start: 20020122, end: 20020122
  11. PHENYLEPHRINE HCL [Concomitant]
     Dosage: 50 MG, UNK
     Route: 042
     Dates: start: 20010630, end: 20010630
  12. DOPAMINE HCL [Concomitant]
     Dosage: 400 MG, UNK
     Route: 042
     Dates: start: 20010630, end: 20010630
  13. ATROPINE [Concomitant]
     Dosage: 1 AMPULE
     Route: 042
     Dates: start: 20010630, end: 20010630
  14. PLAVIX [Concomitant]
     Dosage: 75 UNK DAILY
  15. NEURONTIN [Concomitant]
     Dosage: 300 MG DAILY
     Route: 048
  16. BENADRYL [Concomitant]
     Dosage: 100 MG, UNK
     Route: 042
     Dates: start: 20010630, end: 20010630
  17. VALIUM [Concomitant]
     Dosage: 5 MG, UNK
     Route: 042
     Dates: start: 20010630, end: 20010630
  18. HEPARIN [Concomitant]
     Dosage: UNK
     Route: 042
     Dates: start: 20020122, end: 20020122
  19. SUFENTA PRESERVATIVE FREE [Concomitant]
     Dosage: UNK
     Route: 042
     Dates: start: 20010630, end: 20010630
  20. VANCOMYCIN [Concomitant]
     Dosage: UNK
     Route: 042
     Dates: start: 20010630, end: 20010630
  21. ANCEF [Concomitant]
     Dosage: 2 G, UNK
     Route: 042
     Dates: start: 20010630, end: 20010630
  22. LASIX [Concomitant]
     Dosage: 40 MG, UNK
     Route: 042
     Dates: start: 20010630, end: 20010630
  23. TRASYLOL [Suspect]
     Indication: AORTIC ANEURYSM REPAIR
     Dosage: 1 ML, UNK
     Route: 042
     Dates: start: 20010701, end: 20010701
  24. NORVASC [Concomitant]
     Dosage: 10 MG  DAILY
     Route: 048
  25. VERSED [Concomitant]
     Dosage: UNK
     Route: 042
     Dates: start: 20010630, end: 20010630
  26. ANCEF [Concomitant]
     Dosage: 1 UNK, UNK
     Route: 042
     Dates: start: 20010630, end: 20010630
  27. ISOFLURANE [Concomitant]
     Dosage: UNK
     Route: 042
     Dates: start: 20020122, end: 20020122
  28. PEPCID [Concomitant]
     Dosage: 40MG AT BEDTIME
     Route: 048
  29. LABETALOL HCL [Concomitant]
     Dosage: 200 MG, BID
     Route: 048
  30. MORPHINE SULFATE [Concomitant]
     Dosage: 5 MG, ONCE
     Dates: start: 20020120, end: 20020120
  31. NORMOSOL [Concomitant]
     Dosage: 630 CC, UNK
     Route: 042
     Dates: start: 20010630, end: 20010630
  32. LIDOCAINE [Concomitant]
     Dosage: 100 MG, UNK
     Route: 042
     Dates: start: 20010630, end: 20010630
  33. BACITRACIN [Concomitant]
     Dosage: 50,000 X2
     Route: 042
  34. TRASYLOL [Suspect]
     Indication: AORTIC BYPASS
     Dosage: UNK
     Dates: start: 20020122, end: 20020122
  35. NORMOSOL [Concomitant]
     Dosage: UNK
     Route: 042
     Dates: start: 20020122, end: 20020122

REACTIONS (6)
  - UNEVALUABLE EVENT [None]
  - RENAL FAILURE ACUTE [None]
  - RENAL FAILURE [None]
  - INJURY [None]
  - PAIN [None]
  - PSYCHIATRIC SYMPTOM [None]
